FAERS Safety Report 5721244-2 (Version None)
Quarter: 2008Q2

REPORT INFORMATION
  Report Type: 
  Country: None (occurrence: None)
  Receive Date: 20080428
  Receipt Date: 20080428
  Transmission Date: 20081010
  Serious: Yes (Other)
  Sender: FDA-Public Use
  Company Number: None

PATIENT
  Sex: Male
  Weight: 82.5547 kg

DRUGS (2)
  1. AUGMENTIN XR [Suspect]
     Indication: ACUTE SINUSITIS
     Dosage: 2 TABLETS BID PO
     Route: 048
     Dates: start: 20080108, end: 20080111
  2. AUGMENTIN XR [Suspect]
     Indication: NASAL POLYPS
     Dosage: 2 TABLETS BID PO
     Route: 048
     Dates: start: 20080108, end: 20080111

REACTIONS (3)
  - CHRONIC HEPATITIS [None]
  - HEPATIC FIBROSIS [None]
  - HEPATIC NECROSIS [None]
